FAERS Safety Report 25951262 (Version 1)
Quarter: 2025Q4

REPORT INFORMATION
  Report Type: Spontaneous
  Country: EU (occurrence: EU)
  Receive Date: 20251023
  Receipt Date: 20251023
  Transmission Date: 20260118
  Serious: Yes (Other)
  Sender: BRISTOL-MYERS SQUIBB COMPANY
  Company Number: EU-SANDOZ-SDZ2025AT063292

PATIENT
  Age: 49 Year
  Sex: Male

DRUGS (22)
  1. ELIQUIS [Suspect]
     Active Substance: APIXABAN
     Indication: Product used for unknown indication
     Dosage: 2.5 MG, QD
     Dates: start: 20250620
  2. ZIEXTENZO [Suspect]
     Active Substance: PEGFILGRASTIM-BMEZ
     Indication: Non-small cell lung cancer
  3. ZIEXTENZO [Suspect]
     Active Substance: PEGFILGRASTIM-BMEZ
  4. CARBOPLATIN [Suspect]
     Active Substance: CARBOPLATIN
     Indication: Non-small cell lung cancer
  5. CARBOPLATIN [Suspect]
     Active Substance: CARBOPLATIN
  6. CARBOPLATIN [Suspect]
     Active Substance: CARBOPLATIN
  7. ALIMTA [Suspect]
     Active Substance: PEMETREXED DISODIUM
     Indication: Non-small cell lung cancer
  8. ALIMTA [Suspect]
     Active Substance: PEMETREXED DISODIUM
  9. AMIVANTAMAB [Suspect]
     Active Substance: AMIVANTAMAB
     Indication: Non-small cell lung cancer
  10. CISPLATIN [Suspect]
     Active Substance: CISPLATIN
     Indication: Product used for unknown indication
  11. CISPLATIN [Suspect]
     Active Substance: CISPLATIN
  12. Minostad [Concomitant]
     Indication: Product used for unknown indication
     Dosage: 50 MG, QD
  13. PREDNISOLONE [Concomitant]
     Active Substance: PREDNISOLONE
     Indication: Product used for unknown indication
     Dosage: 25 MG, QD
     Dates: end: 20250731
  14. Erycytol depot [Concomitant]
     Indication: Product used for unknown indication
     Dosage: AMPOULES/1 MG/ML (EVERY THREE MONTHS)
  15. Calvita [Concomitant]
     Indication: Product used for unknown indication
     Dosage: UNK, QD (CALDVITA - KTBL)
  16. Kalioral [Concomitant]
     Indication: Product used for unknown indication
     Dosage: UNK, QD (KALIORAL ^FRESENIUS^ - PLV)
  17. FOLIC ACID [Concomitant]
     Active Substance: FOLIC ACID
     Indication: Product used for unknown indication
     Dosage: 0.4 MG, QD
  18. Inotyol [Concomitant]
     Indication: Product used for unknown indication
     Dosage: 50 G, QD (SLB 50G) AFTER BOWEL MOVEMENT
  19. HYALURONATE SODIUM\TREHALOSE [Concomitant]
     Active Substance: HYALURONATE SODIUM\TREHALOSE
     Indication: Product used for unknown indication
     Dosage: TRO 5 TIMES A DAY, DURING THE  DAY
  20. FLOXAL [Concomitant]
     Active Substance: OFLOXACIN
     Indication: Product used for unknown indication
     Dosage: AU-TR 3 MG/ML BAUSCH + LOMB I.EINZELD.BEH. (PA RALLE) (1 TRO 5X DAILY, DURING THE DAY)
  21. ONDANSETRON HYDROCHLORIDE [Concomitant]
     Active Substance: ONDANSETRON HYDROCHLORIDE
     Indication: Product used for unknown indication
     Dosage: 8 MG, QD IF REQUIRED: MAX. 2X DAILY
  22. MAGNESIUM CARBONATE\MAGNESIUM OXIDE [Concomitant]
     Active Substance: MAGNESIUM CARBONATE\MAGNESIUM OXIDE
     Indication: Product used for unknown indication
     Dosage: 6.1 G, QD (WITH CONSTIPATION TENDENCY) (IF REQUIRED: MAX. 1X DAILY)

REACTIONS (7)
  - Skin reaction [Recovering/Resolving]
  - Condition aggravated [Recovering/Resolving]
  - Target skin lesion [Recovering/Resolving]
  - Renal injury [Unknown]
  - Skin haemorrhage [Recovered/Resolved]
  - Inflammation [Unknown]
  - Rash [Recovering/Resolving]

NARRATIVE: CASE EVENT DATE: 20250101
